FAERS Safety Report 5142167-6 (Version None)
Quarter: 2006Q4

REPORT INFORMATION
  Report Type: 
  Country: None (occurrence: None)
  Receive Date: 20061027
  Receipt Date: 20061010
  Transmission Date: 20070319
  Serious: Yes (Hospitalization)
  Sender: FDA-Public Use
  Company Number: PAR_0870_2006

PATIENT
  Age: 69 Year
  Sex: Male
  Weight: 83.0083 kg

DRUGS (16)
  1. MEGACE ES [Suspect]
     Indication: DECREASED APPETITE
     Dosage: 650 MG QDAY PO
     Route: 048
     Dates: start: 20060907
  2. MA-CS VS. PLACEBO [Suspect]
     Indication: ANOREXIA
     Dosage: 5 ML QDAY PO
     Route: 048
     Dates: start: 20060824, end: 20060906
  3. MA-CS VS. PLACEBO [Suspect]
     Indication: SMALL CELL LUNG CANCER STAGE UNSPECIFIED
     Dosage: 5 ML QDAY PO
     Route: 048
     Dates: start: 20060824, end: 20060906
  4. TYLENOL W/ CODEINE [Concomitant]
  5. PLAVIX [Concomitant]
  6. VYTORIN [Concomitant]
  7. TOPROL-XL [Concomitant]
  8. CARAFATE [Concomitant]
  9. STOMATITIS MIXTURE [Concomitant]
  10. PROTONIX [Concomitant]
  11. MAVIK [Concomitant]
  12. AUGMENTIN '125' [Concomitant]
  13. DARBEPOETIN [Concomitant]
  14. NEUPOGEN [Concomitant]
  15. CISPLATIN [Concomitant]
  16. ETOPOSIDE [Concomitant]

REACTIONS (7)
  - ASTHENIA [None]
  - BLOOD SODIUM DECREASED [None]
  - DEHYDRATION [None]
  - FATIGUE [None]
  - HAEMOGLOBIN DECREASED [None]
  - OESOPHAGITIS [None]
  - ORAL INTAKE REDUCED [None]
